FAERS Safety Report 7436323-1 (Version None)
Quarter: 2011Q2

REPORT INFORMATION
  Report Type: 
  Country: None (occurrence: None)
  Receive Date: 20110426
  Receipt Date: 20110418
  Transmission Date: 20111010
  Serious: Yes (Hospitalization, Other)
  Sender: FDA-Public Use
  Company Number: US-BIOGENIDEC-2008BI018353

PATIENT
  Sex: Female
  Weight: 79 kg

DRUGS (4)
  1. AVONEX [Suspect]
     Indication: MULTIPLE SCLEROSIS
     Route: 030
     Dates: start: 20050210
  2. SEROQUEL [Concomitant]
     Indication: MULTIPLE SCLEROSIS
  3. LEVIMER INSULIN [Concomitant]
     Indication: TYPE 2 DIABETES MELLITUS
  4. AVONEX [Suspect]
     Route: 030
     Dates: start: 20050125

REACTIONS (6)
  - OBESITY [None]
  - FISTULA [None]
  - RENAL CELL CARCINOMA STAGE I [None]
  - ABDOMINAL PAIN UPPER [None]
  - WEIGHT DECREASED [None]
  - INJECTION SITE PAIN [None]
